FAERS Safety Report 10173478 (Version 1)
Quarter: 2014Q2

REPORT INFORMATION
  Report Type: Spontaneous
  Country: US (occurrence: US)
  Receive Date: 20140515
  Receipt Date: 20140515
  Transmission Date: 20141212
  Serious: No
  Sender: FDA-Public Use
  Company Number: US-TEVA-481456USA

PATIENT
  Age: 15 Year
  Sex: Female
  Weight: 68.1 kg

DRUGS (3)
  1. COPAXONE [Suspect]
  2. LANTUS [Concomitant]
     Indication: TYPE 1 DIABETES MELLITUS
  3. HUMALOG [Concomitant]
     Indication: TYPE 1 DIABETES MELLITUS

REACTIONS (1)
  - Accidental exposure to product [Recovered/Resolved]
